FAERS Safety Report 14381940 (Version 1)
Quarter: 2018Q1

REPORT INFORMATION
  Report Type: Spontaneous
  Country: US (occurrence: US)
  Receive Date: 20180111
  Receipt Date: 20180111
  Transmission Date: 20180509
  Serious: Yes (Other)
  Sender: FDA-Public Use
  Company Number: None

PATIENT
  Age: 52 Year
  Sex: Female
  Weight: 92.7 kg

DRUGS (1)
  1. VANCOMYCIN [Suspect]
     Active Substance: VANCOMYCIN
     Indication: CELLULITIS
     Route: 041
     Dates: start: 20171215, end: 20180103

REACTIONS (3)
  - Pruritus [None]
  - Rash generalised [None]
  - Erythema [None]

NARRATIVE: CASE EVENT DATE: 20180103
